FAERS Safety Report 6847591-9 (Version None)
Quarter: 2010Q3

REPORT INFORMATION
  Report Type: 
  Country: None (occurrence: None)
  Receive Date: 20100714
  Receipt Date: 20100630
  Transmission Date: 20110219
  Serious: Yes (Other)
  Sender: FDA-Public Use
  Company Number: AVE_01892_2010

PATIENT
  Sex: Female

DRUGS (11)
  1. CLONIDINE [Suspect]
     Indication: ENDOTRACHEAL INTUBATION COMPLICATION
     Dosage: 0.3 MG QD, VIA 1/WEEKLY PATCH TRANSDERMAL
     Route: 062
     Dates: start: 20100625, end: 20100706
  2. CATAPRES-TTS-1 [Concomitant]
  3. ASPIRIN [Concomitant]
  4. COREG [Concomitant]
  5. TRILEPTAL [Concomitant]
  6. IMDUR [Concomitant]
  7. HYDRALAZINE HCL [Concomitant]
  8. WARFARIN [Concomitant]
  9. CENTRUM SILVER [Concomitant]
  10. PLAVIX [Concomitant]
  11. HUMULIN R [Concomitant]

REACTIONS (11)
  - APPLICATION SITE HAEMATOMA [None]
  - APPLICATION SITE PRURITUS [None]
  - CONVULSION [None]
  - DRUG INEFFECTIVE [None]
  - HEADACHE [None]
  - HEART RATE INCREASED [None]
  - HYPERTENSIVE CRISIS [None]
  - MUSCLE SPASMS [None]
  - PRODUCT ADHESION ISSUE [None]
  - TREMOR [None]
  - VISUAL IMPAIRMENT [None]
